FAERS Safety Report 7679618-9 (Version None)
Quarter: 2011Q3

REPORT INFORMATION
  Report Type: 
  Country: None (occurrence: None)
  Receive Date: 20110809
  Receipt Date: 20110802
  Transmission Date: 20111222
  Serious: Yes (Other)
  Sender: FDA-Public Use
  Company Number: TRP_07866_2011

PATIENT
  Age: 12 Month
  Sex: Male

DRUGS (2)
  1. AMPHOTERICIN B [Suspect]
     Indication: LEISHMANIASIS
  2. AMPHOTERICIN B [Suspect]
     Indication: HISTIOCYTOSIS HAEMATOPHAGIC

REACTIONS (5)
  - CYTOMEGALOVIRUS CHORIORETINITIS [None]
  - BONE MARROW DISORDER [None]
  - CUTANEOUS LEISHMANIASIS [None]
  - GENERAL PHYSICAL HEALTH DETERIORATION [None]
  - VISCERAL LEISHMANIASIS [None]
